FAERS Safety Report 8772640 (Version 2)
Quarter: 2012Q4

REPORT INFORMATION
  Report Type: 
  Country: US (occurrence: US)
  Receive Date: 20120905
  Receipt Date: 20120914
  Transmission Date: 20130627
  Serious: Yes (Hospitalization)
  Sender: FDA-Public Use
  Company Number: US-BAYER-2012-090716

PATIENT
  Age: 42 Year
  Sex: Female

DRUGS (4)
  1. YASMIN [Suspect]
     Indication: VAGINAL HAEMORRHAGE
  2. DEPAKOTE ER [Concomitant]
     Dosage: 500 twice a day
     Route: 048
  3. SYNTHROID [Concomitant]
     Dosage: 112 ?g, QD
  4. SYNTHROID [Concomitant]
     Dosage: 125 ?g, QD

REACTIONS (1)
  - Cerebellar infarction [None]
